FAERS Safety Report 23347985 (Version 2)
Quarter: 2024Q1

REPORT INFORMATION
  Report Type: Spontaneous
  Country: TW (occurrence: TW)
  Receive Date: 20231228
  Receipt Date: 20240207
  Transmission Date: 20240409
  Serious: Yes (Hospitalization, Other)
  Sender: FDA-Public Use
  Company Number: TW-FreseniusKabi-FK202321262

PATIENT
  Age: 64 Year
  Sex: Male

DRUGS (2)
  1. CISPLATIN [Suspect]
     Active Substance: CISPLATIN
     Indication: Small cell lung cancer
     Dosage: [KEMOPLAT]?DOSE: 127.4MG?ROUTE: IV INJECTION
  2. ETOPOSIDE [Suspect]
     Active Substance: ETOPOSIDE
     Indication: Small cell lung cancer
     Dosage: VEPESID?FOUR TABLETS PER DAY (TOTAL 200MG DAILY) FOR 5?DAYS?ROUTE: ORAL

REACTIONS (1)
  - Neutropenic colitis [Recovered/Resolved]
